FAERS Safety Report 9779332 (Version 1)
Quarter: 2013Q4

REPORT INFORMATION
  Report Type: Spontaneous
  Country: US (occurrence: US)
  Receive Date: 20131223
  Receipt Date: 20131223
  Transmission Date: 20140711
  Serious: Yes (Other)
  Sender: FDA-Public Use
  Company Number: US-BAXTER-2013BAX051128

PATIENT
  Sex: Male

DRUGS (3)
  1. DIANEAL LOW CALCIUM [Suspect]
     Indication: RENAL FAILURE CHRONIC
     Route: 033
     Dates: start: 201207, end: 20131113
  2. DIANEAL LOW CALCIUM [Suspect]
     Route: 033
     Dates: start: 201311
  3. DIANEAL LOW CALCIUM [Suspect]
     Route: 033
     Dates: start: 20131218

REACTIONS (8)
  - Inguinal hernia [Recovered/Resolved]
  - Weight increased [Recovering/Resolving]
  - Peritoneal dialysis complication [Recovered/Resolved]
  - Nasopharyngitis [Recovered/Resolved]
  - Cough [Recovered/Resolved]
  - Abdominal distension [Recovering/Resolving]
  - Muscle spasms [Recovering/Resolving]
  - Fluid overload [Recovering/Resolving]
